FAERS Safety Report 23730554 (Version 2)
Quarter: 2024Q2

REPORT INFORMATION
  Report Type: Report from Study
  Country: US (occurrence: US)
  Receive Date: 20240411
  Receipt Date: 20240423
  Transmission Date: 20240715
  Serious: Yes (Other)
  Sender: FDA-Public Use
  Company Number: US-HORIZON THERAPEUTICS-HZN-2024-003307

PATIENT

DRUGS (1)
  1. TEPEZZA [Suspect]
     Active Substance: TEPROTUMUMAB-TRBW
     Indication: Toxic goitre
     Dosage: UNKNOWN INFUSION
     Route: 042

REACTIONS (18)
  - Deafness unilateral [Unknown]
  - Rectal haemorrhage [Unknown]
  - Choking [Unknown]
  - Nasopharyngitis [Not Recovered/Not Resolved]
  - Gastrointestinal motility disorder [Unknown]
  - Taste disorder [Unknown]
  - Epistaxis [Recovered/Resolved]
  - Myalgia [Recovered/Resolved]
  - Dry skin [Unknown]
  - Tinnitus [Unknown]
  - Muscle spasms [Unknown]
  - Nausea [Unknown]
  - Headache [Recovered/Resolved]
  - Epistaxis [Unknown]
  - Oropharyngeal pain [Unknown]
  - Chest discomfort [Unknown]
  - Fatigue [Unknown]
  - Hypoacusis [Unknown]

NARRATIVE: CASE EVENT DATE: 20240101
